FAERS Safety Report 18110663 (Version 2)
Quarter: 2020Q4

REPORT INFORMATION
  Report Type: Report from Study
  Country: FR (occurrence: FR)
  Receive Date: 20200804
  Receipt Date: 20201023
  Transmission Date: 20210113
  Serious: Yes (Life-Threatening, Hospitalization)
  Sender: FDA-Public Use
  Company Number: NVSC2020FR208445

PATIENT
  Age: 23 Year
  Sex: Male

DRUGS (2)
  1. RAD 666 / RAD 001A [Suspect]
     Active Substance: EVEROLIMUS
     Indication: BRAIN STEM GLIOMA
     Dosage: 10 MG
     Route: 048
     Dates: start: 20191227
  2. SOLUPRED [Concomitant]
     Indication: PRODUCT USED FOR UNKNOWN INDICATION
     Dosage: 20 MG
     Route: 048
     Dates: start: 20191004

REACTIONS (1)
  - Herpes simplex meningoencephalitis [Recovered/Resolved]

NARRATIVE: CASE EVENT DATE: 20200717
